FAERS Safety Report 16645432 (Version 1)
Quarter: 2019Q3

REPORT INFORMATION
  Report Type: Report from Study
  Country: None (occurrence: BR)
  Receive Date: 20190729
  Receipt Date: 20190729
  Transmission Date: 20191004
  Serious: Yes (Other)
  Sender: FDA-Public Use
  Company Number: BR-ABBVIE-19K-020-2869761-00

PATIENT
  Age: 55 Year
  Sex: Female
  Weight: 56 kg

DRUGS (4)
  1. OLMECOR [Concomitant]
     Active Substance: OLMESARTAN MEDOXOMIL
     Indication: HYPERTENSION
  2. HUMIRA [Suspect]
     Active Substance: ADALIMUMAB
     Indication: RHEUMATOID ARTHRITIS
     Route: 058
     Dates: start: 20190211, end: 20190625
  3. HIGROTON [Concomitant]
     Active Substance: CHLORTHALIDONE
     Indication: DIURETIC THERAPY
  4. XEFO [Concomitant]
     Active Substance: LORNOXICAM
     Indication: HYPERTENSION

REACTIONS (7)
  - Systemic lupus erythematosus [Unknown]
  - Pain [Not Recovered/Not Resolved]
  - Blood cholesterol increased [Unknown]
  - Fatigue [Recovering/Resolving]
  - Dizziness [Recovering/Resolving]
  - Dyspnoea [Recovering/Resolving]
  - Coronary artery occlusion [Recovering/Resolving]

NARRATIVE: CASE EVENT DATE: 201904
